FAERS Safety Report 5224559-X (Version None)
Quarter: 2007Q1

REPORT INFORMATION
  Report Type: 
  Country: None (occurrence: None)
  Receive Date: 20070126
  Receipt Date: 20070112
  Transmission Date: 20070707
  Serious: Yes (Hospitalization)
  Sender: FDA-Public Use
  Company Number: 20073451

PATIENT
  Sex: Male

DRUGS (7)
  1. LIORESAL [Suspect]
     Indication: MUSCLE SPASTICITY
     Dosage: DAILY, INTRATHECAL
     Route: 037
  2. ORAL BACLOFEN [Concomitant]
  3. MORPHINE [Concomitant]
  4. VALIUM [Concomitant]
  5. VERSED [Concomitant]
  6. ATIVAN [Concomitant]
  7. FENTANYL [Concomitant]

REACTIONS (11)
  - ANXIETY [None]
  - CATHETER RELATED COMPLICATION [None]
  - CATHETER RELATED INFECTION [None]
  - CATHETER SITE DISCHARGE [None]
  - DYSPNOEA [None]
  - HEART RATE INCREASED [None]
  - HYPERTONIA [None]
  - MEDICAL DEVICE COMPLICATION [None]
  - MUSCLE SPASMS [None]
  - PAIN [None]
  - PAIN IN EXTREMITY [None]
